FAERS Safety Report 25780208 (Version 1)
Quarter: 2025Q3

REPORT INFORMATION
  Report Type: Spontaneous
  Country: EU (occurrence: EU)
  Receive Date: 20250909
  Receipt Date: 20250909
  Transmission Date: 20251021
  Serious: Yes (Death, Other)
  Sender: AMGEN
  Company Number: EU-AMGEN-FRASP2025176904

PATIENT
  Age: 53 Year
  Sex: Female

DRUGS (7)
  1. BEVACIZUMAB [Suspect]
     Active Substance: BEVACIZUMAB
     Indication: Colorectal cancer
     Route: 065
  2. FLUOROURACIL\LEUCOVORIN CALCIUM\OXALIPLATIN [Concomitant]
     Active Substance: FLUOROURACIL\LEUCOVORIN CALCIUM\OXALIPLATIN
  3. OXALIPLATIN [Concomitant]
     Active Substance: OXALIPLATIN
     Route: 013
  4. FLUOROURACIL [Concomitant]
     Active Substance: FLUOROURACIL
     Route: 040
  5. FLUOROURACIL\IRINOTECAN\LEUCOVORIN [Concomitant]
     Active Substance: FLUOROURACIL\IRINOTECAN\LEUCOVORIN
  6. DOSTARLIMAB [Concomitant]
     Active Substance: DOSTARLIMAB
  7. TIPIRACIL HYDROCHLORIDE\TRIFLURIDINE [Concomitant]
     Active Substance: TIPIRACIL HYDROCHLORIDE\TRIFLURIDINE

REACTIONS (4)
  - Metastases to heart [Fatal]
  - Colorectal cancer metastatic [Unknown]
  - Pulmonary embolism [Unknown]
  - Hereditary non-polyposis colorectal cancer syndrome [Unknown]

NARRATIVE: CASE EVENT DATE: 20240301
